FAERS Safety Report 4646368-2 (Version None)
Quarter: 2005Q2

REPORT INFORMATION
  Report Type: 
  Country: None (occurrence: None)
  Receive Date: 20050422
  Receipt Date: 20050412
  Transmission Date: 20051028
  Serious: Yes (Life-Threatening)
  Sender: FDA-Public Use
  Company Number: 05P-122-0297254-00

PATIENT
  Age: 66 Year
  Sex: Male

DRUGS (6)
  1. BIAXIN [Suspect]
     Indication: PNEUMONIA
     Dosage: 250 MG, 2 IN 1 D, ORAL
     Route: 048
     Dates: start: 20050321, end: 20050327
  2. WARFARIN SODIUM [Suspect]
     Dosage: 28.5 DOSAGE FORMS, 1 IN 1 WK, ORAL
     Route: 048
  3. FUROSEMIDE [Concomitant]
  4. AMLODIPINE BESYLATE [Concomitant]
  5. CARBAMAZEPINE [Concomitant]
  6. RAMIPRIL [Concomitant]

REACTIONS (4)
  - DRUG INTERACTION [None]
  - EPISTAXIS [None]
  - INTERNATIONAL NORMALISED RATIO INCREASED [None]
  - RECTAL HAEMORRHAGE [None]
